FAERS Safety Report 21269034 (Version 2)
Quarter: 2023Q2

REPORT INFORMATION
  Report Type: Report from Study
  Country: US (occurrence: US)
  Receive Date: 20220830
  Receipt Date: 20230606
  Transmission Date: 20230721
  Serious: Yes (Death, Hospitalization)
  Sender: FDA-Public Use
  Company Number: US-ARGENX-2022-ARGX-US001632

PATIENT
  Sex: Male
  Weight: 88.889 kg

DRUGS (1)
  1. VYVGART [Suspect]
     Active Substance: EFGARTIGIMOD ALFA-FCAB
     Indication: Myasthenia gravis
     Dosage: 940 MG
     Route: 042
     Dates: start: 20220415, end: 20220506

REACTIONS (2)
  - Death [Fatal]
  - Hospitalisation [Unknown]
